FAERS Safety Report 7446262-8 (Version None)
Quarter: 2011Q2

REPORT INFORMATION
  Report Type: 
  Country: None (occurrence: None)
  Receive Date: 20110429
  Receipt Date: 20100603
  Transmission Date: 20111010
  Serious: No
  Sender: FDA-Public Use
  Company Number: US-ASTRAZENECA-2010SE25643

PATIENT
  Age: 46 Year
  Sex: Female
  Weight: 56.7 kg

DRUGS (2)
  1. NEXIUM [Suspect]
     Route: 048
     Dates: start: 20100501
  2. VITAMINES [Concomitant]

REACTIONS (2)
  - FUNGAL INFECTION [None]
  - HYPOTENSION [None]
